FAERS Safety Report 4966489-4 (Version None)
Quarter: 2006Q2

REPORT INFORMATION
  Report Type: 
  Country: None (occurrence: None)
  Receive Date: 20060403
  Receipt Date: 20060327
  Transmission Date: 20061013
  Serious: Yes (Hospitalization, Other)
  Sender: FDA-Public Use
  Company Number: US-2006-000224

PATIENT
  Age: 52 Year
  Sex: Female
  Weight: 86 kg

DRUGS (7)
  1. CLIMARA [Suspect]
     Indication: MENOPAUSAL SYMPTOMS
     Dosage: 0.5 MG/D, CONT, TRANSDERMAL
     Route: 062
  2. PREMPRO [Suspect]
     Indication: MENOPAUSAL SYMPTOMS
     Dosage: 0.625/2.5 MG/D, 1X/DAY
     Dates: start: 19980402
  3. PROVERA [Suspect]
     Indication: MENOPAUSAL SYMPTOMS
     Dosage: 2.5 MG, 1X/DAY, ORAL
     Route: 048
  4. PREFEST [Suspect]
     Indication: MENOPAUSAL SYMPTOMS
     Dates: start: 20000607
  5. ACTIVELLA [Suspect]
     Indication: MENOPAUSAL SYMPTOMS
     Dates: start: 20010222
  6. MEDROXYPROGESTERONE [Suspect]
     Indication: MENOPAUSAL SYMPTOMS
  7. ATARAX [Concomitant]

REACTIONS (24)
  - ABDOMINAL PAIN [None]
  - ANHEDONIA [None]
  - ANXIETY [None]
  - BREAST CANCER STAGE II [None]
  - BREAST MASS [None]
  - BREAST MICROCALCIFICATION [None]
  - DEFORMITY [None]
  - DYSPLASIA [None]
  - FIBROCYSTIC BREAST DISEASE [None]
  - HOT FLUSH [None]
  - INJURY [None]
  - MENOPAUSE [None]
  - MUSCLE SPASMS [None]
  - NAUSEA [None]
  - NIGHT SWEATS [None]
  - OESTROGEN RECEPTOR ASSAY POSITIVE [None]
  - PAIN [None]
  - POST PROCEDURAL CELLULITIS [None]
  - POST PROCEDURAL COMPLICATION [None]
  - PROGESTERONE RECEPTOR ASSAY POSITIVE [None]
  - SEROMA [None]
  - VAGINAL CYST [None]
  - VAGINAL HAEMORRHAGE [None]
  - VOMITING [None]
